FAERS Safety Report 7506533-3 (Version None)
Quarter: 2011Q2

REPORT INFORMATION
  Report Type: 
  Country: None (occurrence: None)
  Receive Date: 20110526
  Receipt Date: 20110520
  Transmission Date: 20111010
  Serious: Yes (Hospitalization)
  Sender: FDA-Public Use
  Company Number: GB-MERCK-1105USA03449

PATIENT
  Age: 77 Year
  Sex: Male
  Weight: 82 kg

DRUGS (5)
  1. GABAPENTIN [Concomitant]
     Indication: INFECTION
     Route: 048
  2. TRAMADOL HYDROCHLORIDE [Concomitant]
     Route: 065
  3. SIMVASTATIN [Concomitant]
     Route: 048
  4. VELCADE [Suspect]
     Indication: MULTIPLE MYELOMA
     Dosage: TWICE A WEEK
     Route: 042
     Dates: start: 20110329, end: 20110405
  5. DECADRON [Suspect]
     Indication: MULTIPLE MYELOMA
     Route: 048
     Dates: start: 20110329, end: 20110408

REACTIONS (2)
  - CONSTIPATION [None]
  - FEBRILE NEUTROPENIA [None]
